FAERS Safety Report 5115590-3 (Version None)
Quarter: 2006Q3

REPORT INFORMATION
  Report Type: 
  Country: None (occurrence: None)
  Receive Date: 20060925
  Receipt Date: 20060907
  Transmission Date: 20061208
  Serious: Yes (Other)
  Sender: FDA-Public Use
  Company Number: PAR_0799_2006

PATIENT
  Age: 53 Year
  Sex: Male

DRUGS (2)
  1. MECLIZINE HCL [Suspect]
     Indication: VERTIGO
     Dosage: 12.5 MG BID PO
     Route: 048
     Dates: start: 20060822, end: 20060907
  2. NABUMETONE [Suspect]
     Indication: ARTHRALGIA
     Dosage: 750 MG BID PO
     Route: 048
     Dates: start: 20060822

REACTIONS (5)
  - BRADYPHRENIA [None]
  - CONDITION AGGRAVATED [None]
  - GAIT DISTURBANCE [None]
  - MEMORY IMPAIRMENT [None]
  - THINKING ABNORMAL [None]
